FAERS Safety Report 26144307 (Version 1)
Quarter: 2025Q4

REPORT INFORMATION
  Report Type: Spontaneous
  Country: CN (occurrence: CN)
  Receive Date: 20251211
  Receipt Date: 20251211
  Transmission Date: 20260118
  Serious: Yes (Other)
  Sender: AUROBINDO
  Company Number: CN-AUROBINDO-AUR-APL-2025-061124

PATIENT
  Age: 38 Year
  Sex: Female

DRUGS (6)
  1. PANTOPRAZOLE SODIUM [Suspect]
     Active Substance: PANTOPRAZOLE SODIUM
     Indication: Helicobacter infection
     Dosage: 40 MILLIGRAM, TWO TIMES A DAY
     Route: 065
     Dates: start: 20251014, end: 20251021
  2. SACCHAROMYCES CEREVISIAE [Suspect]
     Active Substance: SACCHAROMYCES CEREVISIAE
     Indication: Helicobacter infection
     Dosage: 0.25 GRAM, ONCE A DAY
     Route: 065
     Dates: start: 20251014, end: 20251021
  3. BISMUTH SUBCITRATE [Suspect]
     Active Substance: BISMUTH SUBCITRATE
     Indication: Helicobacter infection
     Dosage: 0.22 GRAM, TWO TIMES A DAY
     Route: 065
     Dates: start: 20251014, end: 20251021
  4. AMOXICILLIN [Suspect]
     Active Substance: AMOXICILLIN
     Indication: Helicobacter infection
     Dosage: 1 GRAM, TWO TIMES A DAY
     Dates: start: 20251014, end: 20251019
  5. FURAZOLIDONE [Suspect]
     Active Substance: FURAZOLIDONE
     Indication: Helicobacter infection
     Dosage: 0.1 GRAM, TWO TIMES A DAY
     Route: 065
     Dates: start: 20251014, end: 20251021
  6. TRIMEBUTINE MALEATE [Suspect]
     Active Substance: TRIMEBUTINE MALEATE
     Indication: Helicobacter infection
     Dosage: 0.1 GRAM, TWO TIMES A DAY
     Route: 065
     Dates: start: 20251014, end: 20251021

REACTIONS (5)
  - Papule [Recovered/Resolved]
  - Pruritus [Recovered/Resolved]
  - Macule [Recovered/Resolved]
  - Erythema [Recovered/Resolved]
  - Rash [Recovered/Resolved]

NARRATIVE: CASE EVENT DATE: 20251015
